FAERS Safety Report 12169580 (Version 1)
Quarter: 2016Q1

REPORT INFORMATION
  Report Type: Spontaneous
  Country: US (occurrence: US)
  Receive Date: 20160310
  Receipt Date: 20160310
  Transmission Date: 20160526
  Serious: No
  Sender: FDA-Public Use
  Company Number: US-MEDA-2016020041

PATIENT
  Sex: Female
  Weight: 53 kg

DRUGS (1)
  1. SOMA [Suspect]
     Active Substance: CARISOPRODOL

REACTIONS (1)
  - Drug hypersensitivity [Unknown]
